FAERS Safety Report 17717015 (Version 1)
Quarter: 2020Q2

REPORT INFORMATION
  Report Type: Spontaneous
  Country: US (occurrence: US)
  Receive Date: 20200428
  Receipt Date: 20200428
  Transmission Date: 20200714
  Serious: Yes (Hospitalization, Other)
  Sender: FDA-Public Use
  Company Number: US-CHEPLA-C20201374

PATIENT
  Sex: Female

DRUGS (8)
  1. CISPLATIN. [Suspect]
     Active Substance: CISPLATIN
     Indication: BRAIN NEOPLASM
     Dosage: STANDARD CHEMOTHERAPY
     Route: 065
  2. METHOTREXATE. [Suspect]
     Active Substance: METHOTREXATE
     Indication: BRAIN NEOPLASM
     Dosage: STANDARD CHEMOTHERAPY
     Route: 065
  3. THIOTEPA. [Suspect]
     Active Substance: THIOTEPA
     Indication: BRAIN NEOPLASM
     Dosage: ADMINISTERED ON DAYS -4 AND -3
     Route: 065
  4. ETOPOSIDE. [Suspect]
     Active Substance: ETOPOSIDE
     Indication: BRAIN NEOPLASM
     Dosage: STANDARD CHEMOTHERAPY
     Route: 065
  5. CARBOPLATIN. [Suspect]
     Active Substance: CARBOPLATIN
     Indication: BRAIN NEOPLASM
     Dosage: CONDITIONING REGIMEN ADMINISTERED DAILY 2 DOSES ON DAYS -4, -3
     Route: 065
  6. CYCLOPHOSPHAMIDE. [Suspect]
     Active Substance: CYCLOPHOSPHAMIDE
     Indication: BRAIN NEOPLASM
     Dosage: STANDARD CHEMOTHERAPY
     Route: 065
  7. GANCICLOVIR. [Suspect]
     Active Substance: GANCICLOVIR
     Indication: CYTOMEGALOVIRUS VIRAEMIA
     Route: 065
  8. VINCRISTINE [Suspect]
     Active Substance: VINCRISTINE
     Indication: BRAIN NEOPLASM
     Dosage: STANDARD CHEMOTHERAPY
     Route: 065

REACTIONS (5)
  - Thrombotic microangiopathy [Unknown]
  - Urinary tract infection [Unknown]
  - Respiratory failure [Unknown]
  - Nephropathy toxic [Recovered/Resolved]
  - Clostridium difficile colitis [Unknown]
